FAERS Safety Report 21283278 (Version 2)
Quarter: 2022Q3

REPORT INFORMATION
  Report Type: Spontaneous
  Country: US (occurrence: US)
  Receive Date: 20220901
  Receipt Date: 20220916
  Transmission Date: 20221027
  Serious: Yes (Life-Threatening, Hospitalization)
  Sender: FDA-Public Use
  Company Number: US-TEVA-2022-US-2068574

PATIENT
  Age: 32 Year
  Sex: Female

DRUGS (12)
  1. FENTANYL [Suspect]
     Active Substance: FENTANYL
     Indication: Epidural analgesia
     Dosage: EPIDURAL INFUSION CONSISTING OF BUPIVACAINE WITH FENTANYL 2 MCG/ML ADMINISTERED AT 6 ML/H.
     Route: 008
  2. LIDOCAINE [Suspect]
     Active Substance: LIDOCAINE
     Indication: Epidural anaesthesia
     Dosage: THE EPIDURAL CATHETER WAS BOLUSED INCREMENTALLY WITH A SOLUTION COMPRISING OF LIDOCAINE 2% WITH  ...
     Route: 008
  3. MISOPROSTOL [Suspect]
     Active Substance: MISOPROSTOL
     Indication: Labour induction
     Route: 060
  4. OXYTOCIN [Suspect]
     Active Substance: OXYTOCIN
     Indication: Labour induction
     Dosage: STARTED AT 0.24 U/H AND RANGING FROM 0.04 U/H TO 1.2 U/H
     Route: 050
  5. OXYTOCIN [Suspect]
     Active Substance: OXYTOCIN
     Indication: Uterine atony
     Route: 041
  6. LABETALOL [Suspect]
     Active Substance: LABETALOL\LABETALOL HYDROCHLORIDE
     Indication: Hypertension
     Route: 042
  7. LACTATED RINGERS SOLUTION [Suspect]
     Active Substance: CALCIUM CHLORIDE\POTASSIUM CHLORIDE\SODIUM CHLORIDE\SODIUM LACTATE
     Indication: Fluid replacement
     Dosage: 3 FLUID BOLUSES (500 ML EACH) OF LACTATED RINGER^S SOLUTION OVER 4 HOURS
     Route: 050
  8. BUPIVACAINE [Suspect]
     Active Substance: BUPIVACAINE
     Indication: Epidural analgesia
     Dosage: EPIDURAL INFUSION CONSISTING OF 0.125% BUPIVACAINE WITH FENTANYL ADMINISTERED AT 6 ML/H.
     Route: 008
  9. FUROSEMIDE [Suspect]
     Active Substance: FUROSEMIDE
     Indication: Diuretic therapy
     Route: 042
  10. SODIUM BICARBONATE [Suspect]
     Active Substance: SODIUM BICARBONATE
     Indication: Vehicle solution use
     Dosage: THE EPIDURAL CATHETER WAS BOLUSED INCREMENTALLY WITH A SOLUTION COMPRISING OF LIDOCAINE WITH 1 ML...
     Route: 008
  11. METHYLERGONOVINE [Suspect]
     Active Substance: METHYLERGONOVINE
     Indication: Uterine atony
     Route: 030
  12. CARBOPROST TROMETHAMINE [Concomitant]
     Active Substance: CARBOPROST TROMETHAMINE
     Indication: Uterine atony
     Route: 030

REACTIONS (5)
  - Acute pulmonary oedema [Recovering/Resolving]
  - Mental status changes [Recovering/Resolving]
  - Acute respiratory failure [Recovering/Resolving]
  - Maternal exposure during pregnancy [Unknown]
  - Live birth [Unknown]
